FAERS Safety Report 4954036-2 (Version None)
Quarter: 2006Q1

REPORT INFORMATION
  Report Type: 
  Country: None (occurrence: None)
  Receive Date: 20060322
  Receipt Date: 20060314
  Transmission Date: 20060701
  Serious: Yes (Death, Other)
  Sender: FDA-Public Use
  Company Number: 2006-00494

PATIENT
  Age: 64 Year
  Sex: Male

DRUGS (5)
  1. VELCADE [Suspect]
     Indication: LEUKAEMIA PLASMACYTIC
  2. THALIDOMIDE [Concomitant]
  3. DEXAMETHASONE TAB [Concomitant]
  4. VALSARTAN [Concomitant]
  5. CIMETIDINE [Concomitant]

REACTIONS (4)
  - HYPERKALAEMIA [None]
  - RENAL IMPAIRMENT [None]
  - STEVENS-JOHNSON SYNDROME [None]
  - TOXIC EPIDERMAL NECROLYSIS [None]
